FAERS Safety Report 23626982 (Version 1)
Quarter: 2024Q1

REPORT INFORMATION
  Report Type: Spontaneous
  Country: DE (occurrence: DE)
  Receive Date: 20240313
  Receipt Date: 20240313
  Transmission Date: 20240410
  Serious: Yes (Death, Other)
  Sender: FDA-Public Use
  Company Number: DE-UNITED THERAPEUTICS-UNT-2024-007339

PATIENT

DRUGS (9)
  1. UNITUXIN [Suspect]
     Active Substance: DINUTUXIMAB
     Indication: Central nervous system melanoma
     Dosage: UNK, CYCLICAL (CYCLE 1)
     Route: 041
  2. UNITUXIN [Suspect]
     Active Substance: DINUTUXIMAB
     Dosage: UNK, CYCLICAL (CYCLE 2)
     Route: 041
  3. UNITUXIN [Suspect]
     Active Substance: DINUTUXIMAB
     Dosage: UNK, CYCLICAL (CYCLE 3)
     Route: 041
  4. UNITUXIN [Suspect]
     Active Substance: DINUTUXIMAB
     Dosage: UNK, CYCLICAL (CYCLE 4)
     Route: 041
  5. UNITUXIN [Suspect]
     Active Substance: DINUTUXIMAB
     Dosage: UNK, CYCLICAL (CYCLE 5)
     Route: 041
  6. SIROLIMUS [Concomitant]
     Active Substance: SIROLIMUS
     Indication: Central nervous system melanoma
     Route: 065
  7. DASATINIB [Concomitant]
     Active Substance: DASATINIB
     Indication: Central nervous system melanoma
     Route: 065
  8. IRINOTECAN [Concomitant]
     Active Substance: IRINOTECAN
     Indication: Central nervous system melanoma
     Route: 065
  9. TEMOZOLOMIDE [Concomitant]
     Active Substance: TEMOZOLOMIDE
     Indication: Central nervous system melanoma
     Route: 065

REACTIONS (2)
  - Central nervous system melanoma [Fatal]
  - Off label use [Unknown]
